FAERS Safety Report 11574026 (Version 2)
Quarter: 2015Q4

REPORT INFORMATION
  Report Type: Spontaneous
  Country: US (occurrence: US)
  Receive Date: 20150930
  Receipt Date: 20151130
  Transmission Date: 20160304
  Serious: No
  Sender: FDA-Public Use
  Company Number: US-BRISTOL-MYERS SQUIBB COMPANY-BMS-2015-064893

PATIENT
  Age: 43 Year
  Sex: Male

DRUGS (2)
  1. ZOLOFT [Concomitant]
     Active Substance: SERTRALINE HYDROCHLORIDE
     Indication: PRODUCT USED FOR UNKNOWN INDICATION
     Route: 065
  2. ABILIFY [Suspect]
     Active Substance: ARIPIPRAZOLE
     Indication: ANXIETY
     Dosage: 2 MG, QD
     Route: 048
     Dates: start: 201401, end: 20151112

REACTIONS (4)
  - Off label use [Unknown]
  - Insomnia [Not Recovered/Not Resolved]
  - Eye disorder [Not Recovered/Not Resolved]
  - Tardive dyskinesia [Unknown]

NARRATIVE: CASE EVENT DATE: 20151113
